FAERS Safety Report 11534166 (Version 1)
Quarter: 2015Q3

REPORT INFORMATION
  Report Type: Spontaneous
  Country: GB (occurrence: GB)
  Receive Date: 20150922
  Receipt Date: 20150922
  Transmission Date: 20151125
  Serious: Yes (Hospitalization)
  Sender: FDA-Public Use
  Company Number: GB-ACCORD-033717

PATIENT
  Age: 66 Year
  Sex: Female

DRUGS (5)
  1. SIMVASTATIN. [Suspect]
     Active Substance: SIMVASTATIN
     Indication: BLOOD CHOLESTEROL
     Dosage: EVERY NIGHT
     Route: 048
     Dates: end: 20150827
  2. QUETIAPINE/QUETIAPINE FUMARATE [Concomitant]
     Dosage: FOR MANY YEARS
     Route: 048
     Dates: start: 201506
  3. PARACETAMOL [Concomitant]
     Active Substance: ACETAMINOPHEN
  4. PROCYCLIDINE/PROCYCLIDINE HYDROCHLORIDE [Concomitant]
     Route: 048
  5. FLUPENTIXOL [Concomitant]
     Active Substance: FLUPENTIXOL
     Dosage: DEPOT

REACTIONS (3)
  - Blood creatine phosphokinase increased [Not Recovered/Not Resolved]
  - Rhabdomyolysis [Recovering/Resolving]
  - Fall [Unknown]
